FAERS Safety Report 8163640 (Version 3)
Quarter: 2014Q1

REPORT INFORMATION
  Report Type: Spontaneous
  Country: US (occurrence: US)
  Receive Date: 20110930
  Receipt Date: 20140314
  Transmission Date: 20141002
  Serious: Yes (Hospitalization)
  Sender: FDA-Public Use
  Company Number: US-BAYER-2011-091741

PATIENT
  Age: 29 Year
  Sex: Female
  Weight: 72.56 kg

DRUGS (2)
  1. YASMIN [Suspect]
     Route: 048
     Dates: start: 200401
  2. YASMIN [Suspect]
     Dosage: UNK
     Route: 048
     Dates: start: 2004, end: 200709

REACTIONS (8)
  - Cholecystectomy [None]
  - Cholecystitis acute [None]
  - Injury [None]
  - Pain [None]
  - General physical health deterioration [None]
  - Anxiety [None]
  - Emotional distress [None]
  - Anhedonia [None]
